FAERS Safety Report 6079260-X (Version None)
Quarter: 2009Q1

REPORT INFORMATION
  Report Type: 
  Country: None (occurrence: None)
  Receive Date: 20090216
  Receipt Date: 20090204
  Transmission Date: 20090719
  Serious: Yes (Hospitalization)
  Sender: FDA-Public Use
  Company Number: PHHY2009FR04559

PATIENT

DRUGS (8)
  1. TAREG [Suspect]
     Indication: HYPERTENSION
     Dosage: UNK
     Dates: start: 20060101, end: 20080801
  2. SELOKEN [Suspect]
     Indication: HYPERTENSION
     Dosage: UNK
     Dates: start: 20060101, end: 20080801
  3. METFORMINE ^MERCK^ [Concomitant]
  4. ESOMEPRAZOLE MAGNESIUM [Concomitant]
  5. DIAMICRON [Concomitant]
  6. KARDEGIC [Concomitant]
  7. COSOPT [Concomitant]
  8. XALATAN [Concomitant]

REACTIONS (5)
  - GRANULOMA SKIN [None]
  - LYMPHOCYTIC INFILTRATION [None]
  - PRURITUS [None]
  - PSEUDOLYMPHOMA [None]
  - SKIN LESION [None]
